FAERS Safety Report 9764225 (Version 1)
Quarter: 2013Q4

REPORT INFORMATION
  Report Type: Spontaneous
  Country: ZA (occurrence: ZA)
  Receive Date: 20131216
  Receipt Date: 20131216
  Transmission Date: 20140711
  Serious: Yes (Hospitalization)
  Sender: FDA-Public Use
  Company Number: ZA-PFIZER INC-2013356244

PATIENT
  Sex: Female

DRUGS (3)
  1. CELEBREX [Suspect]
     Indication: EPICONDYLITIS
     Dosage: 200MG AT NIGHT AND 100MG IN THE MORNING
     Route: 048
     Dates: start: 201310, end: 201310
  2. CELEBREX [Suspect]
     Indication: INFLAMMATION
  3. MULTIVIT [Concomitant]
     Indication: SUPPLEMENTATION THERAPY
     Dosage: UNK DAILY
     Route: 048

REACTIONS (5)
  - Anaphylactic reaction [Recovered/Resolved]
  - Blood pressure increased [Recovered/Resolved]
  - Burning sensation [Recovered/Resolved]
  - Autonomic nervous system imbalance [Recovered/Resolved]
  - Pruritus [Recovered/Resolved]
